FAERS Safety Report 6064697-5 (Version None)
Quarter: 2009Q1

REPORT INFORMATION
  Report Type: 
  Country: None (occurrence: None)
  Receive Date: 20090204
  Receipt Date: 20080711
  Transmission Date: 20090719
  Serious: No
  Sender: FDA-Public Use
  Company Number: A0734168A

PATIENT
  Age: 63 Year
  Sex: Female

DRUGS (5)
  1. ARIXTRA [Suspect]
     Indication: PULMONARY EMBOLISM
     Dosage: 7.5MG PER DAY
     Route: 058
     Dates: start: 20080606
  2. ARIMIDEX [Concomitant]
  3. EFFEXOR [Concomitant]
  4. OMEPRAZOLE [Concomitant]
  5. AMBIEN [Concomitant]

REACTIONS (3)
  - INJECTION SITE HAEMATOMA [None]
  - INJECTION SITE SCAB [None]
  - PRODUCT QUALITY ISSUE [None]
